FAERS Safety Report 6736073-0 (Version None)
Quarter: 2010Q2

REPORT INFORMATION
  Report Type: 
  Country: None (occurrence: None)
  Receive Date: 20100521
  Receipt Date: 20100511
  Transmission Date: 20101027
  Serious: Yes (Hospitalization)
  Sender: FDA-Public Use
  Company Number: US-PFIZER INC-2010060143

PATIENT
  Sex: Female

DRUGS (3)
  1. LYRICA [Suspect]
     Indication: FIBROMYALGIA
     Dosage: 50 MG, 3X/DAY
     Route: 048
     Dates: start: 20100101, end: 20100509
  2. ARMODAFINIL [Concomitant]
     Indication: SOMNOLENCE
     Dosage: 150 MG, 1X/DAY
     Route: 048
  3. PRISTIQ [Concomitant]
     Indication: DEPRESSION
     Dosage: 50 MG, 1X/DAY
     Route: 048

REACTIONS (2)
  - CONVULSION [None]
  - MUSCLE TWITCHING [None]
